FAERS Safety Report 8142664-5 (Version None)
Quarter: 2012Q1

REPORT INFORMATION
  Report Type: 
  Country: None (occurrence: None)
  Receive Date: 20120216
  Receipt Date: 20120215
  Transmission Date: 20120608
  Serious: Yes (Other)
  Sender: FDA-Public Use
  Company Number: US-PFIZER INC-2012041466

PATIENT
  Sex: Female
  Weight: 68.027 kg

DRUGS (3)
  1. MOTRIN [Concomitant]
     Indication: HEADACHE
     Dosage: UNK, AS NEEDED
  2. ALPRAZOLAM [Suspect]
     Indication: ANXIETY
     Dosage: 1 MG, 4X/DAY
     Route: 048
  3. ALPRAZOLAM [Suspect]
     Indication: PANIC DISORDER

REACTIONS (1)
  - ANKLE FRACTURE [None]
